FAERS Safety Report 17098780 (Version 2)
Quarter: 2019Q4

REPORT INFORMATION
  Report Type: Spontaneous
  Country: CH (occurrence: CH)
  Receive Date: 20191202
  Receipt Date: 20191231
  Transmission Date: 20200122
  Serious: Yes (Other)
  Sender: FDA-Public Use
  Company Number: CH-FRESENIUS KABI-FK201913131

PATIENT
  Sex: Male
  Weight: 75 kg

DRUGS (1)
  1. SMOFLIPID [Suspect]
     Active Substance: FISH OIL\MEDIUM-CHAIN TRIGLYCERIDES\OLIVE OIL\SOYBEAN OIL
     Indication: OFF LABEL USE
     Dosage: 2500ML DURING 4.5H
     Route: 041
     Dates: start: 20191111, end: 20191111

REACTIONS (3)
  - Pancreatitis [Unknown]
  - Off label use [Unknown]
  - Hyperlipidaemia [Unknown]

NARRATIVE: CASE EVENT DATE: 20191119
